FAERS Safety Report 23184892 (Version 1)
Quarter: 2023Q4

REPORT INFORMATION
  Report Type: Spontaneous
  Country: US (occurrence: US)
  Receive Date: 20231115
  Receipt Date: 20231115
  Transmission Date: 20240110
  Serious: No
  Sender: FDA-Public Use
  Company Number: US-ABBVIE-5494067

PATIENT

DRUGS (1)
  1. HUMIRA [Suspect]
     Active Substance: ADALIMUMAB
     Indication: Product used for unknown indication
     Route: 058

REACTIONS (5)
  - Pain in extremity [Unknown]
  - Contusion [Unknown]
  - Limb discomfort [Unknown]
  - Peripheral swelling [Unknown]
  - Pruritus [Unknown]
